FAERS Safety Report 9062396 (Version 2)
Quarter: 2013Q1

REPORT INFORMATION
  Report Type: Spontaneous
  Country: JP (occurrence: JP)
  Receive Date: 20130213
  Receipt Date: 20130301
  Transmission Date: 20140127
  Serious: Yes (Other)
  Sender: FDA-Public Use
  Company Number: JP-GLAXOSMITHKLINE-B0866143A

PATIENT
  Age: 7 Decade
  Sex: Male

DRUGS (1)
  1. PAXIL [Suspect]
     Indication: DEPRESSED MOOD
     Route: 048

REACTIONS (3)
  - Suicidal ideation [Unknown]
  - Activation syndrome [Unknown]
  - Panic reaction [Unknown]
